FAERS Safety Report 9293528 (Version 1)
Quarter: 2013Q2

REPORT INFORMATION
  Report Type: Report from Study
  Country: US (occurrence: US)
  Receive Date: 20130517
  Receipt Date: 20130517
  Transmission Date: 20140414
  Serious: Yes (Other)
  Sender: FDA-Public Use
  Company Number: US-ROCHE-1225070

PATIENT
  Age: 41 Year
  Sex: Male

DRUGS (2)
  1. MYCOPHENOLATE MOFETIL [Suspect]
     Indication: BIRDSHOT CHORIORETINOPATHY
     Dosage: FOR 7 MONTHS
     Route: 065
  2. CYCLOSPORINE A [Suspect]
     Indication: BIRDSHOT CHORIORETINOPATHY
     Route: 065

REACTIONS (3)
  - Dyspnoea [Unknown]
  - Gastrooesophageal reflux disease [Unknown]
  - Fatigue [Unknown]
